FAERS Safety Report 24549064 (Version 1)
Quarter: 2024Q4

REPORT INFORMATION
  Report Type: Spontaneous
  Country: FR (occurrence: FR)
  Receive Date: 20241025
  Receipt Date: 20241025
  Transmission Date: 20250114
  Serious: Yes (Other)
  Sender: MERCK
  Company Number: None

PATIENT
  Age: 76 Year
  Sex: Male
  Weight: 93 kg

DRUGS (11)
  1. KEYTRUDA [Suspect]
     Active Substance: PEMBROLIZUMAB
     Indication: Lung neoplasm malignant
     Dosage: 200 MILLIGRAM, CYCLICAL
     Route: 042
     Dates: start: 20231114
  2. ELIQUIS [Concomitant]
     Active Substance: APIXABAN
  3. TAHOR [Concomitant]
     Active Substance: ATORVASTATIN CALCIUM
  4. BISOPROLOL FUMARATE [Concomitant]
     Active Substance: BISOPROLOL FUMARATE
  5. PREGABALIN [Concomitant]
     Active Substance: PREGABALIN
  6. DOLIPRANE [Concomitant]
     Active Substance: ACETAMINOPHEN
  7. FUROSEMIDE [Concomitant]
     Active Substance: FUROSEMIDE
  8. SPIRONOLACTONE [Concomitant]
     Active Substance: SPIRONOLACTONE
  9. ARANESP [Concomitant]
     Active Substance: DARBEPOETIN ALFA
  10. NEULASTA [Concomitant]
     Active Substance: PEGFILGRASTIM
  11. FILGRASTIM [Concomitant]
     Active Substance: FILGRASTIM

REACTIONS (1)
  - Neutropenia [Recovered/Resolved]

NARRATIVE: CASE EVENT DATE: 20240513
